FAERS Safety Report 25632891 (Version 2)
Quarter: 2025Q3

REPORT INFORMATION
  Report Type: Report from Study
  Country: US (occurrence: US)
  Receive Date: 20250801
  Receipt Date: 20250820
  Transmission Date: 20251021
  Serious: Yes (Hospitalization)
  Sender: CALLIDITAS THERAPEUTICS AB
  Company Number: US-Calliditas-2025CAL02283

PATIENT
  Age: 72 Year
  Sex: Male

DRUGS (18)
  1. TARPEYO [Suspect]
     Active Substance: BUDESONIDE
     Indication: IgA nephropathy
     Route: 048
     Dates: start: 20250627
  2. FILSPARI [Suspect]
     Active Substance: SPARSENTAN
     Indication: Product used for unknown indication
  3. ACYCLOVIR [Concomitant]
     Active Substance: ACYCLOVIR
  4. ALDACTONE [Concomitant]
     Active Substance: SPIRONOLACTONE
  5. BACTRIM [Concomitant]
     Active Substance: SULFAMETHOXAZOLE\TRIMETHOPRIM
  6. BISOPROLOL [Concomitant]
     Active Substance: BISOPROLOL
  7. CHOLECALCIFEROL [Concomitant]
     Active Substance: CHOLECALCIFEROL
  8. DECADRON [Concomitant]
     Active Substance: DEXAMETHASONE
  9. HYDRALAZINE [Concomitant]
     Active Substance: HYDRALAZINE HYDROCHLORIDE
  10. LASIX [Concomitant]
     Active Substance: FUROSEMIDE
  11. LATANOPROST [Concomitant]
     Active Substance: LATANOPROST
  12. LISINOPRIL [Concomitant]
     Active Substance: LISINOPRIL
  13. LOSARTAN [Concomitant]
     Active Substance: LOSARTAN
  14. MELATONIN [Concomitant]
     Active Substance: MELATONIN
  15. NIACIN [Concomitant]
     Active Substance: NIACIN
  16. NORVASC [Concomitant]
     Active Substance: AMLODIPINE BESYLATE
  17. SPS [Concomitant]
     Active Substance: SODIUM POLYSTYRENE SULFONATE
  18. ZOCOR [Concomitant]
     Active Substance: SIMVASTATIN

REACTIONS (2)
  - Blood pressure increased [Recovering/Resolving]
  - Oedema [Recovered/Resolved]

NARRATIVE: CASE EVENT DATE: 20250623
